FAERS Safety Report 21999794 (Version 1)
Quarter: 2023Q1

REPORT INFORMATION
  Report Type: Spontaneous
  Country: US (occurrence: None)
  Receive Date: 20230215
  Receipt Date: 20230215
  Transmission Date: 20230418
  Serious: Yes (Hospitalization)
  Sender: FDA-Public Use
  Company Number: None

PATIENT
  Age: 30 Year
  Sex: Male
  Weight: 81 kg

DRUGS (6)
  1. .DELTA.8-TETRAHYDROCANNABINOL\HERBALS [Suspect]
     Active Substance: .DELTA.8-TETRAHYDROCANNABINOL\HERBALS
     Indication: Self-medication
     Dates: start: 20230114, end: 20230130
  2. .DELTA.8-TETRAHYDROCANNABINOL\HERBALS [Suspect]
     Active Substance: .DELTA.8-TETRAHYDROCANNABINOL\HERBALS
     Indication: Depression
  3. Depekote [Concomitant]
  4. VRAYLAR [Concomitant]
     Active Substance: CARIPRAZINE
  5. Mult vitamin [Concomitant]
  6. FISH OIL [Concomitant]
     Active Substance: FISH OIL

REACTIONS (2)
  - Mania [None]
  - Delusion [None]

NARRATIVE: CASE EVENT DATE: 20230130
